FAERS Safety Report 7363205-6 (Version None)
Quarter: 2011Q1

REPORT INFORMATION
  Report Type: 
  Country: None (occurrence: None)
  Receive Date: 20110321
  Receipt Date: 20110118
  Transmission Date: 20110831
  Serious: Yes (Hospitalization, Other)
  Sender: FDA-Public Use
  Company Number: US-BAYER-201015106NA

PATIENT
  Sex: Female
  Weight: 66 kg

DRUGS (10)
  1. XANAX [Concomitant]
     Indication: ANXIETY
  2. YAZ [Suspect]
     Indication: PREMENSTRUAL SYNDROME
     Dosage: AS USED DOSE: UNK
     Route: 048
     Dates: start: 20051101, end: 20070315
  3. ECLIPSE [Concomitant]
  4. LORTAB [Concomitant]
     Dosage: 5 MG, UNK
     Route: 048
  5. DESOGESTREL AND ETHINYL ESTRADIOL [Concomitant]
  6. UNCODEABLE ^UNCLASSIFIABLE^ [Concomitant]
  7. YAZ [Suspect]
     Indication: ACNE
     Dosage: AS USED DOSE: UNK
     Route: 048
  8. RECLIPSIN [Concomitant]
  9. ZOFRAN [Concomitant]
     Dosage: 4 MG, UNK
     Route: 048
  10. ALBUTEROL [Concomitant]

REACTIONS (5)
  - BILIARY DYSKINESIA [None]
  - CHOLECYSTITIS CHRONIC [None]
  - DEEP VEIN THROMBOSIS [None]
  - PAIN IN EXTREMITY [None]
  - OEDEMA PERIPHERAL [None]
